FAERS Safety Report 16196682 (Version 2)
Quarter: 2019Q2

REPORT INFORMATION
  Report Type: Spontaneous
  Country: US (occurrence: US)
  Receive Date: 20190415
  Receipt Date: 20190426
  Transmission Date: 20190711
  Serious: No
  Sender: FDA-Public Use
  Company Number: US-BAYER-2019-070653

PATIENT
  Sex: Female

DRUGS (3)
  1. MIRENA [Suspect]
     Active Substance: LEVONORGESTREL
     Indication: MENORRHAGIA
     Dosage: 20 MCG/24HR, CONT
     Route: 015
     Dates: start: 2013
  2. MIRENA [Suspect]
     Active Substance: LEVONORGESTREL
     Indication: MENORRHAGIA
     Dosage: 20 MCG/24HR, CONT
     Route: 015
     Dates: start: 2014
  3. MIRENA [Suspect]
     Active Substance: LEVONORGESTREL
     Indication: MENORRHAGIA

REACTIONS (10)
  - Device use issue [None]
  - Vaginal haemorrhage [Not Recovered/Not Resolved]
  - Breast tenderness [None]
  - Vaginal haemorrhage [None]
  - Abdominal pain lower [Not Recovered/Not Resolved]
  - Abdominal pain lower [None]
  - Product prescribing issue [None]
  - Breast tenderness [Not Recovered/Not Resolved]
  - Drug ineffective [None]
  - Migraine [None]

NARRATIVE: CASE EVENT DATE: 2018
